FAERS Safety Report 10414151 (Version 2)
Quarter: 2014Q3

REPORT INFORMATION
  Report Type: Spontaneous
  Country: US (occurrence: US)
  Receive Date: 20140827
  Receipt Date: 20140827
  Transmission Date: 20150326
  Serious: No
  Sender: FDA-Public Use
  Company Number: US-ASTRAZENECA-2013SE70292

PATIENT
  Age: 50 Year
  Sex: Female
  Weight: 72.6 kg

DRUGS (3)
  1. SYMBICORT [Suspect]
     Active Substance: BUDESONIDE\FORMOTEROL FUMARATE DIHYDRATE
     Indication: LARYNGEAL OEDEMA
     Dosage: 80/4.5 MCG, TWO PUFFS, EVERY MORNING
     Route: 055
  2. SYMBICORT [Suspect]
     Active Substance: BUDESONIDE\FORMOTEROL FUMARATE DIHYDRATE
     Indication: LARYNGEAL OEDEMA
     Dosage: 160 MCG,  EVERY MORNING
     Route: 055
  3. UNSPECIFIED MEDICATIONS [Concomitant]
     Active Substance: UNSPECIFIED INGREDIENT

REACTIONS (2)
  - Foreign body [Unknown]
  - Off label use [Unknown]

NARRATIVE: CASE EVENT DATE: 20130918
